FAERS Safety Report 10628889 (Version 2)
Quarter: 2014Q4

REPORT INFORMATION
  Report Type: Spontaneous
  Country: US (occurrence: US)
  Receive Date: 20141205
  Receipt Date: 20141205
  Transmission Date: 20150529
  Serious: Yes (Life-Threatening, Hospitalization)
  Sender: FDA-Public Use
  Company Number: US-BRISTOL-MYERS SQUIBB COMPANY-21206511

PATIENT
  Age: 41 Year
  Sex: Male

DRUGS (19)
  1. VITAMIN C [Concomitant]
     Active Substance: ASCORBIC ACID
     Dosage: TOOK IN MORNING ON THE DAY OF PROCEDURE.
  2. KENALOG-40 [Suspect]
     Active Substance: TRIAMCINOLONE ACETONIDE
     Indication: NECK PAIN
     Dosage: EX DATE: 3C82285-FEB2015,3M56298-DEC2015?1DF=NOT } 1 CC OF A MIXTURE OF 50:50 MARCAINE/KENALOG-40
     Route: 014
     Dates: start: 20140711
  3. KENALOG-40 [Suspect]
     Active Substance: TRIAMCINOLONE ACETONIDE
     Indication: ARTHRODESIS
     Dosage: EX DATE: 3C82285-FEB2015,3M56298-DEC2015?1DF=NOT } 1 CC OF A MIXTURE OF 50:50 MARCAINE/KENALOG-40
     Route: 014
     Dates: start: 20140711
  4. VERSED [Suspect]
     Active Substance: MIDAZOLAM HYDROCHLORIDE
     Dosage: 1 MG AND 3 MG AT DIFFERENT TIME.
     Route: 042
  5. OMNIPAQUE [Suspect]
     Active Substance: IOHEXOL
     Dosage: 1DF=240 MG
  6. SIMVASTATIN. [Concomitant]
     Active Substance: SIMVASTATIN
  7. FENTANYL. [Suspect]
     Active Substance: FENTANYL
     Route: 042
  8. OMEPRAZOLE. [Concomitant]
     Active Substance: OMEPRAZOLE
  9. KENALOG-40 [Suspect]
     Active Substance: TRIAMCINOLONE ACETONIDE
     Indication: FACET JOINT SYNDROME
     Dosage: EX DATE: 3C82285-FEB2015,3M56298-DEC2015?1DF=NOT } 1 CC OF A MIXTURE OF 50:50 MARCAINE/KENALOG-40
     Route: 014
     Dates: start: 20140711
  10. MARCAINE [Suspect]
     Active Substance: BUPIVACAINE HYDROCHLORIDE
     Dosage: 1DF=NOT } 1 CC OF A MIXTURE OF 50:50 0.5% MARCAINE AND KENALOG-40
  11. CLONAZEPAM. [Concomitant]
     Active Substance: CLONAZEPAM
  12. FISH OIL [Concomitant]
     Active Substance: FISH OIL
  13. ZOFRAN [Suspect]
     Active Substance: ONDANSETRON HYDROCHLORIDE
  14. LISINOPRIL. [Concomitant]
     Active Substance: LISINOPRIL
     Dosage: TOOK IN MORNING ON THE DAY OF PROCEDURE.
  15. GABAPENTIN. [Concomitant]
     Active Substance: GABAPENTIN
  16. NIACIN. [Concomitant]
     Active Substance: NIACIN
  17. IBUPROFEN. [Concomitant]
     Active Substance: IBUPROFEN
     Dosage: EVERY 8 HOURS AS NEEDED.
  18. KENALOG-40 [Suspect]
     Active Substance: TRIAMCINOLONE ACETONIDE
     Indication: INTERVERTEBRAL DISC DEGENERATION
     Dosage: EX DATE: 3C82285-FEB2015,3M56298-DEC2015?1DF=NOT } 1 CC OF A MIXTURE OF 50:50 MARCAINE/KENALOG-40
     Route: 014
     Dates: start: 20140711
  19. LANSOPRAZOLE. [Concomitant]
     Active Substance: LANSOPRAZOLE

REACTIONS (1)
  - Anaphylactic reaction [Unknown]

NARRATIVE: CASE EVENT DATE: 20140711
